FAERS Safety Report 10873166 (Version 1)
Quarter: 2015Q1

REPORT INFORMATION
  Report Type: Report from Study
  Country: DE (occurrence: DE)
  Receive Date: 20150227
  Receipt Date: 20150227
  Transmission Date: 20150721
  Serious: Yes (Hospitalization)
  Sender: FDA-Public Use
  Company Number: DE-TAKEDA-2013-02146

PATIENT
  Age: 84 Year
  Sex: Female

DRUGS (4)
  1. VELCADE [Suspect]
     Active Substance: BORTEZOMIB
     Indication: PLASMA CELL MYELOMA
     Dosage: UNK
     Route: 065
     Dates: start: 20080818, end: 20111107
  2. EPOETIN ALFA [Concomitant]
     Active Substance: ERYTHROPOIETIN
  3. ARANESP [Concomitant]
     Active Substance: DARBEPOETIN ALFA
  4. NEUPOGEN [Concomitant]
     Active Substance: FILGRASTIM

REACTIONS (2)
  - Road traffic accident [Recovered/Resolved]
  - Facial bones fracture [Recovered/Resolved]

NARRATIVE: CASE EVENT DATE: 20130108
